FAERS Safety Report 17824989 (Version 1)
Quarter: 2020Q2

REPORT INFORMATION
  Report Type: Spontaneous
  Country: US (occurrence: US)
  Receive Date: 20200526
  Receipt Date: 20200526
  Transmission Date: 20200714
  Serious: Yes (Death)
  Sender: FDA-Public Use
  Company Number: None

PATIENT
  Age: 85 Year
  Sex: Male
  Weight: 67.1 kg

DRUGS (4)
  1. QUETIAPINE. [Concomitant]
     Active Substance: QUETIAPINE
     Dates: start: 20200522, end: 20200523
  2. REMDESIVIR SOLUTION [Suspect]
     Active Substance: REMDESIVIR
     Indication: COVID-19 PNEUMONIA
     Dates: start: 20200511, end: 20200515
  3. MODAFINIL. [Concomitant]
     Active Substance: MODAFINIL
     Dates: start: 20200523, end: 20200525
  4. TRAZODONE [Concomitant]
     Active Substance: TRAZODONE HYDROCHLORIDE
     Dates: start: 20200521, end: 20200522

REACTIONS (5)
  - Encephalopathy [None]
  - Sudden cardiac death [None]
  - Respiratory failure [None]
  - Creatinine renal clearance decreased [None]
  - Arrhythmia [None]

NARRATIVE: CASE EVENT DATE: 20200525
